FAERS Safety Report 13321440 (Version 3)
Quarter: 2018Q1

REPORT INFORMATION
  Report Type: Report from Study
  Country: US (occurrence: US)
  Receive Date: 20170310
  Receipt Date: 20180207
  Transmission Date: 20180508
  Serious: No
  Sender: FDA-Public Use
  Company Number: US-009507513-1703USA003527

PATIENT
  Age: 37 Year
  Sex: Female
  Weight: 128.7 kg

DRUGS (2)
  1. IMPLANON [Suspect]
     Active Substance: ETONOGESTREL
     Dosage: 68 MG (1 ROD), EVERY 3 YEARS
     Route: 059
     Dates: start: 20170111, end: 20170111
  2. IMPLANON [Suspect]
     Active Substance: ETONOGESTREL
     Dosage: 68 MG (1 ROD), EVERY 3 YEARS
     Route: 059
     Dates: start: 20170111

REACTIONS (4)
  - Product quality issue [Unknown]
  - Complication of device insertion [Recovered/Resolved]
  - Device deployment issue [Not Recovered/Not Resolved]
  - Metrorrhagia [Not Recovered/Not Resolved]

NARRATIVE: CASE EVENT DATE: 20170111
